FAERS Safety Report 14843199 (Version 3)
Quarter: 2018Q2

REPORT INFORMATION
  Report Type: Spontaneous
  Country: DE (occurrence: DE)
  Receive Date: 20180503
  Receipt Date: 20180522
  Transmission Date: 20180711
  Serious: Yes (Other)
  Sender: FDA-Public Use
  Company Number: PHHY2018DE075653

PATIENT
  Sex: Female

DRUGS (1)
  1. SIGNIFOR LAR [Suspect]
     Active Substance: PASIREOTIDE
     Indication: ACROMEGALY
     Dosage: 60 MG, QMO
     Route: 065
     Dates: start: 2014

REACTIONS (7)
  - Product administered at inappropriate site [Unknown]
  - Needle issue [Unknown]
  - Product use issue [Unknown]
  - Vitreous haemorrhage [Unknown]
  - Inappropriate schedule of drug administration [Unknown]
  - Sleep disorder [Unknown]
  - Abdominal pain [Unknown]
